FAERS Safety Report 24729434 (Version 1)
Quarter: 2024Q4

REPORT INFORMATION
  Report Type: Spontaneous
  Country: RS (occurrence: RS)
  Receive Date: 20241213
  Receipt Date: 20241213
  Transmission Date: 20250114
  Serious: Yes (Other)
  Sender: JOHNSON AND JOHNSON
  Company Number: RS-JNJFOC-20241233213

PATIENT
  Age: 82 Year
  Sex: Male

DRUGS (2)
  1. ERLEADA [Suspect]
     Active Substance: APALUTAMIDE
     Indication: Prostate cancer
     Route: 048
  2. ERLEADA [Suspect]
     Active Substance: APALUTAMIDE
     Route: 048

REACTIONS (1)
  - Measles [Recovered/Resolved]
